FAERS Safety Report 8412466-0 (Version None)
Quarter: 2012Q2

REPORT INFORMATION
  Report Type: 
  Country: None (occurrence: None)
  Receive Date: 20120605
  Receipt Date: 20120518
  Transmission Date: 20120825
  Serious: Yes (Other)
  Sender: FDA-Public Use
  Company Number: US-AMGEN-USASP2012002006

PATIENT
  Age: 53 Year
  Sex: Female
  Weight: 113.83 kg

DRUGS (11)
  1. ENBREL [Suspect]
     Indication: PSORIATIC ARTHROPATHY
     Dosage: 50 MG, 2 TIMES/WK
     Route: 058
     Dates: start: 20110801
  2. PRILOSEC [Concomitant]
     Dosage: 40 MG, QD
     Route: 048
  3. CELEBREX [Concomitant]
     Dosage: 200 MG, BID
     Route: 048
  4. PRISTIQ [Concomitant]
     Dosage: 50 MG, QD
     Route: 048
  5. TOPROL-XL [Concomitant]
     Dosage: 50 MG, QD
     Route: 048
  6. ATACAND HCT [Concomitant]
     Dosage: UNK UNK, QD
     Route: 048
  7. XANAX [Concomitant]
     Indication: ANXIETY
     Dosage: 0.5 MG, PRN
     Route: 048
  8. KLOR-CON [Concomitant]
     Dosage: 10 MEQ, QD
     Route: 048
  9. ATARAX [Concomitant]
     Indication: PRURITUS
     Dosage: 25 MG, PRN
     Route: 048
  10. ENBREL [Suspect]
     Indication: PSORIASIS
     Dosage: 50 MG, 2 TIMES/WK
     Route: 058
     Dates: start: 20110725
  11. XANAX [Concomitant]
     Indication: INSOMNIA

REACTIONS (5)
  - HEPATIC STEATOSIS [None]
  - AUTOIMMUNE HEPATITIS [None]
  - PSORIASIS [None]
  - HAEMOSIDEROSIS [None]
  - HEPATIC ENZYME INCREASED [None]
